FAERS Safety Report 7942797-X (Version None)
Quarter: 2011Q4

REPORT INFORMATION
  Report Type: 
  Country: None (occurrence: None)
  Receive Date: 20111128
  Receipt Date: 20111010
  Transmission Date: 20120403
  Serious: No
  Sender: FDA-Public Use
  Company Number: US-BAYER-2011-094131

PATIENT
  Sex: Female

DRUGS (2)
  1. IBUPROFEN [Concomitant]
     Dosage: 2 DF, UNK
  2. ALEVE (CAPLET) [Suspect]
     Indication: ANALGESIC THERAPY
     Dosage: 1 DF, ONCE
     Route: 048
     Dates: end: 20110928

REACTIONS (1)
  - NO ADVERSE EVENT [None]
